FAERS Safety Report 8618535-4 (Version None)
Quarter: 2012Q3

REPORT INFORMATION
  Report Type: 
  Country: None (occurrence: None)
  Receive Date: 20120814
  Receipt Date: 20120814
  Transmission Date: 20120928
  Serious: Yes (Death, Life-Threatening, Hospitalization, Disabling)
  Sender: FDA-Public Use
  Company Number: None

PATIENT
  Age: 57 Year
  Sex: Male
  Weight: 163.2949 kg

DRUGS (1)
  1. LEVAQUIN [Suspect]
     Indication: PERIDIVERTICULAR ABSCESS
     Dates: start: 20120420, end: 20120421

REACTIONS (3)
  - FALL [None]
  - MEMORY IMPAIRMENT [None]
  - CARDIAC ARREST [None]
